FAERS Safety Report 11743750 (Version 7)
Quarter: 2016Q3

REPORT INFORMATION
  Report Type: Report from Study
  Country: JP (occurrence: JP)
  Receive Date: 20151116
  Receipt Date: 20160920
  Transmission Date: 20161109
  Serious: Yes (Hospitalization, Other)
  Sender: FDA-Public Use
  Company Number: JP-BRISTOL-MYERS SQUIBB COMPANY-BMS-2015-079048

PATIENT
  Age: 78 Year
  Sex: Female

DRUGS (4)
  1. NIVOLUMAB [Suspect]
     Active Substance: NIVOLUMAB
     Indication: MALIGNANT MELANOMA
     Dosage: 2 MG/KG, QD
     Route: 041
     Dates: start: 20150904, end: 20150904
  2. NIVOLUMAB [Suspect]
     Active Substance: NIVOLUMAB
     Dosage: UNK
     Route: 065
  3. NIVOLUMAB [Suspect]
     Active Substance: NIVOLUMAB
     Dosage: 2 MG/KG, QD
     Route: 041
     Dates: start: 20150925, end: 20150925
  4. NIVOLUMAB [Suspect]
     Active Substance: NIVOLUMAB
     Dosage: 2 MG/KG, QD
     Route: 041
     Dates: start: 20151016, end: 20151016

REACTIONS (6)
  - Histiocytosis haematophagic [Recovered/Resolved]
  - Blood lactate dehydrogenase increased [Recovered/Resolved]
  - Off label use [Unknown]
  - Hypothyroidism [Recovered/Resolved]
  - Liver disorder [Recovered/Resolved]
  - Pyrexia [Recovered/Resolved]

NARRATIVE: CASE EVENT DATE: 20150904
